FAERS Safety Report 8440309-8 (Version None)
Quarter: 2012Q2

REPORT INFORMATION
  Report Type: 
  Country: None (occurrence: None)
  Receive Date: 20120615
  Receipt Date: 20120608
  Transmission Date: 20120825
  Serious: Yes (Hospitalization)
  Sender: FDA-Public Use
  Company Number: FR-ABBOTT-12P-056-0944499-00

PATIENT
  Age: 16 Year
  Sex: Male

DRUGS (1)
  1. VALPROIC ACID [Suspect]
     Indication: CONVULSION
     Route: 048
     Dates: start: 20111224, end: 20120121

REACTIONS (4)
  - HYPONATRAEMIA [None]
  - COLITIS [None]
  - GASTRITIS [None]
  - OESOPHAGITIS [None]
